FAERS Safety Report 15475640 (Version 1)
Quarter: 2018Q4

REPORT INFORMATION
  Report Type: Spontaneous
  Country: US (occurrence: US)
  Receive Date: 20181008
  Receipt Date: 20181008
  Transmission Date: 20190205
  Serious: No
  Sender: FDA-Public Use
  Company Number: US-PRINSTON PHARMACEUTICAL INC.-2018PRN00017

PATIENT
  Sex: Female

DRUGS (1)
  1. IRBESARTAN. [Suspect]
     Active Substance: IRBESARTAN
     Indication: BLOOD PRESSURE ABNORMAL
     Dosage: UNK

REACTIONS (2)
  - Drug ineffective [Not Recovered/Not Resolved]
  - Blood pressure fluctuation [Not Recovered/Not Resolved]
